FAERS Safety Report 5787672-4 (Version None)
Quarter: 2008Q2

REPORT INFORMATION
  Report Type: 
  Country: None (occurrence: None)
  Receive Date: 20080624
  Receipt Date: 20080624
  Transmission Date: 20081010
  Serious: Yes (Hospitalization)
  Sender: FDA-Public Use
  Company Number: None

PATIENT
  Age: 53 Year
  Sex: Male
  Weight: 36.2878 kg

DRUGS (4)
  1. VINORELBINE [Suspect]
     Indication: GASTRIC CANCER
     Dosage: 37MG D1,D8,D15 IV
     Route: 042
     Dates: start: 20080509
  2. VINORELBINE [Suspect]
     Indication: GASTRIC CANCER
     Dosage: 37MG D1,D8,D15 IV
     Route: 042
     Dates: start: 20080516
  3. VINORELBINE [Suspect]
     Indication: GASTRIC CANCER
     Dosage: 37MG D1,D8,D15 IV
     Route: 042
     Dates: start: 20080523
  4. LAPATININB [Suspect]
     Indication: GASTRIC CANCER
     Dosage: 1500MG D2-5D9-12, D16-25 PO
     Route: 048
     Dates: start: 20080509, end: 20080602

REACTIONS (3)
  - NAUSEA [None]
  - VOMITING [None]
  - WEIGHT DECREASED [None]
